FAERS Safety Report 22001310 (Version 5)
Quarter: 2023Q2

REPORT INFORMATION
  Report Type: Report from Study
  Country: TW (occurrence: TW)
  Receive Date: 20230216
  Receipt Date: 20230525
  Transmission Date: 20230721
  Serious: Yes (Death, Hospitalization)
  Sender: FDA-Public Use
  Company Number: TW-ABBVIE-4279851

PATIENT
  Age: 78 Year
  Sex: Male
  Weight: 70 kg

DRUGS (8)
  1. EPCORITAMAB [Suspect]
     Active Substance: EPCORITAMAB
     Indication: B-cell lymphoma
     Dosage: ONCE
     Route: 058
     Dates: start: 20230109, end: 20230109
  2. EPCORITAMAB [Suspect]
     Active Substance: EPCORITAMAB
     Indication: B-cell lymphoma
     Dosage: ONCE
     Route: 058
     Dates: start: 20230116, end: 20230116
  3. LENALIDOMIDE [Suspect]
     Active Substance: LENALIDOMIDE
     Indication: B-cell lymphoma
     Dosage: DAYS 1-21 OF EACH 28-DAY CYCLE
     Route: 048
     Dates: start: 20230109, end: 20230122
  4. IBRUTINIB [Suspect]
     Active Substance: IBRUTINIB
     Indication: B-cell lymphoma
     Route: 050
  5. VENETOCLAX [Suspect]
     Active Substance: VENETOCLAX
     Indication: B-cell lymphoma
     Route: 050
  6. CISPLATIN [Concomitant]
     Active Substance: CISPLATIN
     Indication: B-cell lymphoma
     Route: 042
     Dates: start: 20230210, end: 20230210
  7. RITUXIMAB [Concomitant]
     Active Substance: RITUXIMAB
     Indication: B-cell lymphoma
     Route: 042
     Dates: start: 20230210, end: 20230210
  8. GEMCITABINE HYDROCHLORIDE [Concomitant]
     Active Substance: GEMCITABINE HYDROCHLORIDE
     Indication: B-cell lymphoma
     Route: 042
     Dates: start: 20230210, end: 20230210

REACTIONS (3)
  - Sepsis [Fatal]
  - Hypophagia [Not Recovered/Not Resolved]
  - Fluid intake reduced [Not Recovered/Not Resolved]

NARRATIVE: CASE EVENT DATE: 20230123
